FAERS Safety Report 6898537-9 (Version None)
Quarter: 2010Q3

REPORT INFORMATION
  Report Type: 
  Country: None (occurrence: None)
  Receive Date: 20100802
  Receipt Date: 20071102
  Transmission Date: 20110219
  Serious: No
  Sender: FDA-Public Use
  Company Number: US-PFIZER INC-2007092365

PATIENT
  Sex: Female
  Weight: 99.8 kg

DRUGS (5)
  1. LYRICA [Suspect]
     Indication: NERVE INJURY
     Dates: start: 20071001
  2. ACETYLSALICYLIC ACID SRT [Concomitant]
     Indication: MITRAL VALVE INCOMPETENCE
  3. VALSARTAN [Concomitant]
  4. TOPROL-XL [Concomitant]
  5. FEMARA [Concomitant]
     Indication: BREAST CANCER

REACTIONS (1)
  - VISION BLURRED [None]
